FAERS Safety Report 6146249-1 (Version None)
Quarter: 2009Q2

REPORT INFORMATION
  Report Type: 
  Country: None (occurrence: None)
  Receive Date: 20090406
  Receipt Date: 20090406
  Transmission Date: 20091009
  Serious: Yes (Life-Threatening)
  Sender: FDA-Public Use
  Company Number: None

PATIENT
  Age: 62 Year
  Sex: Female
  Weight: 46.7205 kg

DRUGS (1)
  1. AUGMENTIN '125' [Suspect]
     Indication: SINUSITIS
     Dosage: 2 TABS 2 TIMES A DAY
     Dates: start: 20081204, end: 20081204

REACTIONS (12)
  - ANOREXIA [None]
  - CHROMATURIA [None]
  - DRUG DISPENSING ERROR [None]
  - IMPAIRED WORK ABILITY [None]
  - INCORRECT DOSE ADMINISTERED [None]
  - LIVER DISORDER [None]
  - LIVER INJURY [None]
  - MALAISE [None]
  - MEDICATION ERROR [None]
  - OCULAR ICTERUS [None]
  - RASH [None]
  - YELLOW SKIN [None]
